FAERS Safety Report 20649008 (Version 1)
Quarter: 2022Q1

REPORT INFORMATION
  Report Type: Report from Study
  Country: ES (occurrence: None)
  Receive Date: 20220329
  Receipt Date: 20220329
  Transmission Date: 20220423
  Serious: Yes (Hospitalization)
  Sender: FDA-Public Use
  Company Number: ES-ROCHE-3058331

PATIENT
  Age: 48 Year
  Sex: Female
  Weight: 61 kg

DRUGS (18)
  1. ATEZOLIZUMAB [Suspect]
     Active Substance: ATEZOLIZUMAB
     Indication: Pancreatic carcinoma metastatic
     Dosage: ON 11/MAR/2022, RECEIVED MOST RECENT DOSE OF ATEZOLIZUMAB (840 MG) BEFORE EVENT ONSET.
     Route: 041
     Dates: start: 20201126
  2. TIRAGOLUMAB [Suspect]
     Active Substance: TIRAGOLUMAB
     Indication: Pancreatic carcinoma metastatic
     Dosage: ON 11/MAR/2022, RECEIVED MOST RECENT DOSE OF TIRAGOLUMAB (420 MG) BEFORE EVENT ONSET.
     Route: 042
     Dates: start: 20201126
  3. GEMCITABINE [Suspect]
     Active Substance: GEMCITABINE
     Indication: Pancreatic carcinoma metastatic
     Dosage: DAYS 1, 8, AND 15 OF EACH 28 DAY CYCLE.?ON 11/MAR/2022, RECEIVED MOST RECENT DOSE OF GEMCITABINE (15
     Route: 042
     Dates: start: 20201126
  4. PACLITAXEL [Suspect]
     Active Substance: PACLITAXEL
     Indication: Pancreatic carcinoma metastatic
     Dosage: ON DAYS 1, 8, AND 15 OF EACH 28 DAY CYCLE.?ON 11/MAR/2022, RECEIVED MOST RECENT DOSE OF ALBUMIN BOUN
     Route: 042
     Dates: start: 20201126
  5. HYDROCHLOROTHIAZIDE\TELMISARTAN [Concomitant]
     Active Substance: HYDROCHLOROTHIAZIDE\TELMISARTAN
     Indication: Hypertension
     Route: 048
     Dates: start: 2010
  6. OMEPRAZOLE [Concomitant]
     Active Substance: OMEPRAZOLE
     Indication: Prophylaxis
     Route: 048
     Dates: start: 2019
  7. METFORMIN [Concomitant]
     Active Substance: METFORMIN HYDROCHLORIDE
     Indication: Pancreatic failure
     Route: 048
     Dates: start: 202008
  8. PANCRELIPASE [Concomitant]
     Active Substance: PANCRELIPASE
     Indication: Pancreatic failure
     Route: 048
     Dates: start: 202009
  9. DESOGESTREL [Concomitant]
     Active Substance: DESOGESTREL
     Indication: Ovarian cyst
     Route: 048
     Dates: start: 2019
  10. FELODIPINE\METOPROLOL SUCCINATE [Concomitant]
     Active Substance: FELODIPINE\METOPROLOL SUCCINATE
     Indication: Hypertension
     Route: 048
     Dates: start: 2010
  11. ATORVASTATIN [Concomitant]
     Active Substance: ATORVASTATIN
     Indication: Dyslipidaemia
     Route: 048
     Dates: start: 2018
  12. ENOXAPARIN SODIUM [Concomitant]
     Active Substance: ENOXAPARIN SODIUM
     Indication: Prophylaxis
     Route: 058
     Dates: start: 20201013
  13. ASPIRIN [Concomitant]
     Active Substance: ASPIRIN
  14. ACETAMINOPHEN [Concomitant]
     Active Substance: ACETAMINOPHEN
  15. FERPLEX [Concomitant]
  16. MAGNOGENE [Concomitant]
  17. POTASSIUM CHLORIDE [Concomitant]
     Active Substance: POTASSIUM CHLORIDE
  18. DEXAMETHASONE [Concomitant]
     Active Substance: DEXAMETHASONE

REACTIONS (1)
  - Fistula [Recovered/Resolved]

NARRATIVE: CASE EVENT DATE: 20220322
